FAERS Safety Report 14032107 (Version 1)
Quarter: 2017Q4

REPORT INFORMATION
  Report Type: Report from Study
  Country: IT (occurrence: IT)
  Receive Date: 20171002
  Receipt Date: 20171002
  Transmission Date: 20180321
  Serious: Yes (Hospitalization)
  Sender: FDA-Public Use
  Company Number: IT-PFIZER INC-2017281371

PATIENT
  Age: 41 Year
  Sex: Female
  Weight: 46 kg

DRUGS (15)
  1. OXALIPLATIN. [Suspect]
     Active Substance: OXALIPLATIN
     Dosage: 119 MG, UNK
     Route: 042
  2. OXALIPLATIN. [Suspect]
     Active Substance: OXALIPLATIN
     Indication: ADENOCARCINOMA GASTRIC
     Dosage: 119 MG, UNK
     Route: 042
     Dates: start: 20161020
  3. OXALIPLATIN. [Suspect]
     Active Substance: OXALIPLATIN
     Dosage: 119 MG, UNK
     Route: 042
     Dates: start: 20170126
  4. LEUCOVORIN /00566701/ [Concomitant]
     Active Substance: LEUCOVORIN
     Dosage: 280 MG, CYCLIC(ONCE IN 2 WEEKS)
     Route: 042
     Dates: start: 20170407, end: 20170605
  5. FLUOROURACIL. [Suspect]
     Active Substance: FLUOROURACIL
     Dosage: 3640 MG, CYCLIC(ONCE IN 2 WEEKS)
     Route: 042
     Dates: end: 20161229
  6. K-FLEBO [Concomitant]
     Indication: HYPOKALAEMIA
     Dosage: 30 MEQ, 2X/DAY
     Route: 042
     Dates: start: 20161117, end: 20161119
  7. POLASE [Concomitant]
     Active Substance: MAGNESIUM ASPARTATE\POTASSIUM ASPARTATE
     Indication: HYPOKALAEMIA
     Dosage: 225 MG, 2X/DAY
     Route: 048
     Dates: start: 20161105, end: 20161117
  8. FLUOROURACIL. [Suspect]
     Active Substance: FLUOROURACIL
     Indication: ADENOCARCINOMA GASTRIC
     Dosage: 3640 MG, CYCLIC(ONCE IN 2 WEEKS)
     Route: 042
     Dates: start: 20161020
  9. LEUCOVORIN /00566701/ [Concomitant]
     Active Substance: LEUCOVORIN
     Dosage: 280 MG, CYCLIC(ONCE IN 2 WEEKS)
     Route: 042
     Dates: start: 20170126, end: 20170324
  10. OXALIPLATIN. [Suspect]
     Active Substance: OXALIPLATIN
     Dosage: 119 MG, UNK
     Route: 042
     Dates: end: 20161229
  11. OXALIPLATIN. [Suspect]
     Active Substance: OXALIPLATIN
     Dosage: 119 MG, UNK
     Route: 042
  12. OXALIPLATIN. [Suspect]
     Active Substance: OXALIPLATIN
     Dosage: 119 MG, UNK
     Route: 042
     Dates: end: 20170519
  13. FLUOROURACIL. [Suspect]
     Active Substance: FLUOROURACIL
     Dosage: 3640 MG, CYCLIC(ONCE IN 2 WEEKS)
     Route: 042
     Dates: start: 20170126
  14. FLUOROURACIL. [Suspect]
     Active Substance: FLUOROURACIL
     Dosage: 3640 MG, CYCLIC(ONCE IN 2 WEEKS)
     Route: 042
     Dates: end: 20170605
  15. LEUCOVORIN /00566701/ [Concomitant]
     Active Substance: LEUCOVORIN
     Indication: ADENOCARCINOMA GASTRIC
     Dosage: 280 MG, CYCLIC(ONCE IN 2 WEEKS)
     Route: 042
     Dates: start: 20161020, end: 20161229

REACTIONS (3)
  - Anaemia [Recovered/Resolved]
  - Hyponatraemia [Recovered/Resolved]
  - Hypokalaemia [Recovered/Resolved]

NARRATIVE: CASE EVENT DATE: 20170617
